FAERS Safety Report 18022312 (Version 3)
Quarter: 2024Q1

REPORT INFORMATION
  Report Type: Report from Study
  Country: CO (occurrence: CO)
  Receive Date: 20200714
  Receipt Date: 20240312
  Transmission Date: 20240410
  Serious: Yes (Life-Threatening, Hospitalization)
  Sender: FDA-Public Use
  Company Number: CO-002147023-NVSC2020CO188060

PATIENT

DRUGS (4)
  1. RUXOLITINIB [Suspect]
     Active Substance: RUXOLITINIB
     Indication: Polycythaemia vera
     Dosage: (APPROXIMATELY 3 YEARS AGO)
     Route: 048
  2. RUXOLITINIB [Suspect]
     Active Substance: RUXOLITINIB
     Dosage: 5 MG, Q12H
     Route: 048
  3. RUXOLITINIB [Suspect]
     Active Substance: RUXOLITINIB
     Dosage: 20 MG, QD
     Route: 065
     Dates: start: 2014, end: 202310
  4. RUXOLITINIB [Suspect]
     Active Substance: RUXOLITINIB
     Dosage: UNK
     Route: 065

REACTIONS (12)
  - Dizziness [Unknown]
  - Rebound effect [Unknown]
  - Nocturia [Recovered/Resolved]
  - Feeling abnormal [Unknown]
  - Hepatic failure [Unknown]
  - Incorrect dose administered [Unknown]
  - Renal failure [Unknown]
  - Micturition urgency [Unknown]
  - Psychiatric symptom [Unknown]
  - Vomiting [Unknown]
  - Urinary tract infection [Unknown]
  - Chromaturia [Unknown]
